FAERS Safety Report 21045526 (Version 1)
Quarter: 2022Q3

REPORT INFORMATION
  Report Type: Spontaneous
  Country: ES (occurrence: ES)
  Receive Date: 20220706
  Receipt Date: 20220706
  Transmission Date: 20221027
  Serious: Yes (Hospitalization)
  Sender: FDA-Public Use
  Company Number: None

PATIENT
  Age: 80 Year
  Sex: Female

DRUGS (10)
  1. INVOKANA [Suspect]
     Active Substance: CANAGLIFLOZIN
     Indication: Type 2 diabetes mellitus
     Route: 048
     Dates: start: 20201210, end: 20220612
  2. METFORMIN [Suspect]
     Active Substance: METFORMIN HYDROCHLORIDE
     Indication: Type 2 diabetes mellitus
     Route: 048
     Dates: start: 20120529, end: 20220612
  3. OMEPRAZOLE [Concomitant]
     Active Substance: OMEPRAZOLE
     Route: 048
     Dates: start: 20120517
  4. RASILEZ [Concomitant]
     Active Substance: ALISKIREN
     Route: 048
     Dates: start: 20120515
  5. LANTUS [Concomitant]
     Active Substance: INSULIN GLARGINE
     Indication: Type 2 diabetes mellitus
     Route: 058
     Dates: start: 20130619
  6. TARKA [Concomitant]
     Active Substance: TRANDOLAPRIL\VERAPAMIL HYDROCHLORIDE
     Dosage: MODIFIED RELEASE CAPSULES; 180 MG/2 MG
     Route: 048
     Dates: start: 20120504
  7. METAMIZOLE MAGNESIUM [Concomitant]
     Active Substance: METAMIZOLE MAGNESIUM
     Route: 048
     Dates: start: 20210602
  8. LEVOTHYROXINE SODIUM [Concomitant]
     Active Substance: LEVOTHYROXINE SODIUM
     Indication: Primary hypothyroidism
     Route: 048
     Dates: start: 20151008
  9. INDAPAMIDE [Concomitant]
     Active Substance: INDAPAMIDE
     Indication: Hypertension
     Route: 048
     Dates: start: 20120528
  10. ACETAMINOPHEN [Concomitant]
     Active Substance: ACETAMINOPHEN
     Route: 048
     Dates: start: 20210602

REACTIONS (2)
  - Euglycaemic diabetic ketoacidosis [Recovered/Resolved]
  - Acute kidney injury [Recovered/Resolved]

NARRATIVE: CASE EVENT DATE: 20220610
